FAERS Safety Report 24814085 (Version 1)
Quarter: 2025Q1

REPORT INFORMATION
  Report Type: Spontaneous
  Country: US (occurrence: None)
  Receive Date: 20250107
  Receipt Date: 20250107
  Transmission Date: 20250408
  Serious: Yes (Hospitalization, Other)
  Sender: UNICHEM
  Company Number: US-Unichem Pharmaceuticals (USA) Inc-UCM202501-000021

PATIENT
  Age: 58 Year
  Sex: Female

DRUGS (1)
  1. MELOXICAM [Suspect]
     Active Substance: MELOXICAM
     Indication: Osteoarthritis

REACTIONS (4)
  - Intestinal diaphragm disease [Unknown]
  - Helicobacter gastritis [Unknown]
  - Normocytic anaemia [Unknown]
  - Small intestinal obstruction [Unknown]
